FAERS Safety Report 14106003 (Version 1)
Quarter: 2017Q4

REPORT INFORMATION
  Report Type: Report from Study
  Country: US (occurrence: US)
  Receive Date: 20171019
  Receipt Date: 20171019
  Transmission Date: 20180321
  Serious: No
  Sender: FDA-Public Use
  Company Number: US-AMGEN-USASL2017157307

PATIENT
  Age: 73 Year
  Sex: Female

DRUGS (1)
  1. ENBREL [Suspect]
     Active Substance: ETANERCEPT
     Indication: PRODUCT USED FOR UNKNOWN INDICATION
     Dosage: UNK,
     Route: 065

REACTIONS (5)
  - Vomiting [Unknown]
  - Anxiety [Unknown]
  - Rubber sensitivity [Unknown]
  - Malaise [Unknown]
  - Panic attack [Unknown]

NARRATIVE: CASE EVENT DATE: 20171015
